FAERS Safety Report 9243008 (Version 1)
Quarter: 2013Q2

REPORT INFORMATION
  Report Type: Spontaneous
  Country: US (occurrence: US)
  Receive Date: 20130419
  Receipt Date: 20130419
  Transmission Date: 20140414
  Serious: Yes (Death, Other)
  Sender: FDA-Public Use
  Company Number: PHHY2013US038307

PATIENT
  Sex: Female

DRUGS (7)
  1. CARBOPLATIN [Suspect]
     Indication: OVARIAN CANCER
     Dosage: UNK UKN, UNK
  2. PACLITAXEL [Suspect]
     Indication: OVARIAN CANCER
  3. OXALIPLATIN [Suspect]
     Indication: OVARIAN CANCER
  4. GEMCITABINE [Suspect]
     Indication: OVARIAN CANCER
  5. CISPLATIN [Suspect]
     Indication: OVARIAN CANCER
     Route: 033
  6. PEGYLATED LIPOSOMA DOXORUBICIN HYDROCHLORIDE [Suspect]
     Indication: OVARIAN CANCER
     Dosage: 510 MG/M2, UNK
  7. BEVACIZUMAB [Suspect]
     Indication: OVARIAN CANCER

REACTIONS (5)
  - Ovarian cancer [Fatal]
  - Malignant neoplasm progression [Fatal]
  - Renal failure chronic [Unknown]
  - Hypertension [Unknown]
  - Ovarian cancer recurrent [Unknown]
